FAERS Safety Report 5745577-9 (Version None)
Quarter: 2008Q2

REPORT INFORMATION
  Report Type: 
  Country: None (occurrence: None)
  Receive Date: 20080519
  Receipt Date: 20080219
  Transmission Date: 20081010
  Serious: No
  Sender: FDA-Public Use
  Company Number: TPA2008A00230

PATIENT
  Age: 47 Year
  Sex: Male
  Weight: 81.6475 kg

DRUGS (4)
  1. ROZEREM [Suspect]
     Indication: MIDDLE INSOMNIA
     Dosage: 8 MG, HS AS NEEDED, PER ORAL
     Route: 048
     Dates: start: 20080213
  2. AMBIEN [Concomitant]
  3. FLOMAX [Concomitant]
  4. MUCINEX [Concomitant]

REACTIONS (4)
  - ABNORMAL DREAMS [None]
  - DRUG INEFFECTIVE [None]
  - MIDDLE INSOMNIA [None]
  - POOR QUALITY SLEEP [None]
